FAERS Safety Report 4797473-1 (Version None)
Quarter: 2005Q4

REPORT INFORMATION
  Report Type: 
  Country: None (occurrence: None)
  Receive Date: 20051013
  Receipt Date: 20050928
  Transmission Date: 20060501
  Serious: Yes (Other)
  Sender: FDA-Public Use
  Company Number: US-AMGEN-US152267

PATIENT
  Sex: Female

DRUGS (1)
  1. ENBREL [Suspect]
     Indication: PSORIATIC ARTHROPATHY
     Dates: start: 20050601, end: 20050917

REACTIONS (6)
  - AMNESIA [None]
  - CONDITION AGGRAVATED [None]
  - DIZZINESS [None]
  - DYSPHEMIA [None]
  - FATIGUE [None]
  - HYPOAESTHESIA [None]
